FAERS Safety Report 5047298-7 (Version None)
Quarter: 2006Q3

REPORT INFORMATION
  Report Type: 
  Country: None (occurrence: None)
  Receive Date: 20060703
  Receipt Date: 20060620
  Transmission Date: 20061208
  Serious: Yes (Life-Threatening)
  Sender: FDA-Public Use
  Company Number: DEU-2006-0002279

PATIENT
  Age: 50 Year
  Sex: Female
  Weight: 56 kg

DRUGS (4)
  1. OXYGESIC 5 MG (OXY CR TAB 5 MG) (OXYCODONE HYDROCHLORIDE)PROLONGED-REL [Suspect]
     Indication: BACK PAIN
     Dosage: 5 MG, Q12H, ORAL
     Route: 048
     Dates: start: 20060410, end: 20060427
  2. ANTIDEPRESSANTS [Concomitant]
  3. ANALGESICS [Concomitant]
  4. DIPYRONE TAB [Concomitant]

REACTIONS (2)
  - DEPRESSION [None]
  - SUICIDAL IDEATION [None]
